FAERS Safety Report 8394280-8 (Version None)
Quarter: 2012Q2

REPORT INFORMATION
  Report Type: 
  Country: None (occurrence: None)
  Receive Date: 20120530
  Receipt Date: 20120521
  Transmission Date: 20120825
  Serious: Yes (Hospitalization)
  Sender: FDA-Public Use
  Company Number: HU-B.I. PHARMACEUTICALS,INC./RIDGEFIELD-2012-AP-00426AP

PATIENT
  Age: 80 Year
  Sex: Female

DRUGS (6)
  1. PAFENON [Concomitant]
  2. ADIMET [Concomitant]
  3. SPIRONOLACTONE [Concomitant]
  4. PRADAXA [Suspect]
     Route: 048
     Dates: start: 20120519, end: 20120519
  5. BISOPROLOL FUMARATE [Concomitant]
  6. RETAFYLLIN [Concomitant]

REACTIONS (5)
  - VOMITING [None]
  - TACHYCARDIA [None]
  - HYPERHIDROSIS [None]
  - TREMOR [None]
  - CHEST PAIN [None]
